FAERS Safety Report 21549219 (Version 9)
Quarter: 2023Q1

REPORT INFORMATION
  Report Type: Report from Study
  Country: US (occurrence: US)
  Receive Date: 20221103
  Receipt Date: 20230317
  Transmission Date: 20230417
  Serious: Yes (Other)
  Sender: FDA-Public Use
  Company Number: US-PAREXEL-2021-KAM-US003627

PATIENT
  Sex: Female
  Weight: 42 kg

DRUGS (43)
  1. GLASSIA [Suspect]
     Active Substance: .ALPHA.1-PROTEINASE INHIBITOR HUMAN
     Indication: Alpha-1 antitrypsin deficiency
     Dosage: 60 MILLIGRAM/KILOGRAM, 1/WEEK
     Route: 042
     Dates: start: 20190206
  2. GLASSIA [Suspect]
     Active Substance: .ALPHA.1-PROTEINASE INHIBITOR HUMAN
     Indication: Alpha-1 antitrypsin deficiency
     Dosage: 60 MILLIGRAM/KILOGRAM, 1/WEEK
     Route: 042
     Dates: start: 20190206
  3. DIPHENHYDRAMINE [Concomitant]
     Active Substance: DIPHENHYDRAMINE
     Dosage: UNK
     Route: 065
  4. BUDESONIDE [Concomitant]
     Active Substance: BUDESONIDE
     Dosage: UNK; AMPUL NEB (NEBULIZER)
     Route: 065
  5. METOPROLOL SUCCINATE [Concomitant]
     Active Substance: METOPROLOL SUCCINATE
     Dosage: UNK
     Route: 065
  6. FUROSEMIDE [Concomitant]
     Active Substance: FUROSEMIDE
     Dosage: UNK
     Route: 065
  7. SODIUM CHLORIDE [Concomitant]
     Active Substance: SODIUM CHLORIDE
     Dosage: UNK
     Route: 065
  8. EPINEPHRINE [Concomitant]
     Active Substance: EPINEPHRINE
     Dosage: UNK; AUTO INJECTOR
     Route: 065
  9. SPIRIVA [Concomitant]
     Active Substance: TIOTROPIUM BROMIDE MONOHYDRATE
     Dosage: UNK
     Route: 065
  10. POTASSIUM CHLORIDE [Concomitant]
     Active Substance: POTASSIUM CHLORIDE
     Dosage: UNK
     Route: 065
  11. PRAVASTATIN SODIUM [Concomitant]
     Active Substance: PRAVASTATIN SODIUM
     Dosage: UNK
     Route: 065
  12. SINGULAIR [Concomitant]
     Active Substance: MONTELUKAST SODIUM
     Dosage: UNK
     Route: 065
  13. PERFOROMIST [Concomitant]
     Active Substance: FORMOTEROL FUMARATE DIHYDRATE
     Dosage: UNK
     Route: 065
  14. AMLODIPINE BESYLATE [Concomitant]
     Active Substance: AMLODIPINE BESYLATE
  15. OXYGEN [Concomitant]
     Active Substance: OXYGEN
     Dosage: UNK
     Route: 065
  16. TYLENOL EXTRA STRENGTH [Concomitant]
     Active Substance: ACETAMINOPHEN
     Dosage: UNK
     Route: 065
  17. NITROGLYCERIN [Concomitant]
     Active Substance: NITROGLYCERIN
     Dosage: UNK; SUBLINGUAL
     Route: 065
  18. MODERNA COVID-19 VACCINE [Concomitant]
     Active Substance: ELASOMERAN
     Route: 065
  19. HEPARIN [Concomitant]
     Active Substance: HEPARIN SODIUM
     Dosage: UNK
     Route: 065
  20. FLUTICASONE PROPIONATE [Concomitant]
     Active Substance: FLUTICASONE PROPIONATE
     Dosage: UNK
     Route: 065
  21. LOSARTAN POTASSIUM [Concomitant]
     Active Substance: LOSARTAN POTASSIUM
  22. MINERALS\VITAMINS [Concomitant]
     Active Substance: MINERALS\VITAMINS
     Dosage: UNK; CHEW
     Route: 065
  23. VITAMIN D3 [Concomitant]
     Active Substance: CHOLECALCIFEROL
     Dosage: UNK; AUTO INJECTOR
     Route: 065
  24. VITAMIN C [Concomitant]
     Active Substance: ASCORBIC ACID
     Dosage: UNK; CHEW
     Route: 065
  25. RIFAMPIN [Concomitant]
     Active Substance: RIFAMPIN
     Dosage: UNK
     Route: 065
  26. CALCIUM [Concomitant]
     Active Substance: CALCIUM
     Dosage: UNK; CHEW
     Route: 065
  27. POTASSIUM [Concomitant]
     Active Substance: POTASSIUM
  28. ETHAMBUTOL HYDROCHLORIDE [Concomitant]
     Active Substance: ETHAMBUTOL HYDROCHLORIDE
     Dosage: UNK
     Route: 065
  29. FOLIC ACID [Concomitant]
     Active Substance: FOLIC ACID
     Dosage: UNK
     Route: 065
  30. GABAPENTIN [Concomitant]
     Active Substance: GABAPENTIN
  31. PREDNISONE [Concomitant]
     Active Substance: PREDNISONE
     Route: 065
  32. TRAMADOL [Concomitant]
     Active Substance: TRAMADOL
     Route: 065
  33. RANEXA [Concomitant]
     Active Substance: RANOLAZINE
     Route: 065
  34. PROLIA [Concomitant]
     Active Substance: DENOSUMAB
     Route: 065
  35. ASPIRIN [Concomitant]
     Active Substance: ASPIRIN
     Route: 065
  36. VITAMIN D3 VITAMIN K1 [Concomitant]
     Route: 065
  37. ALBUTEROL SULFATE [Concomitant]
     Active Substance: ALBUTEROL SULFATE
  38. ALBUTEROL [Concomitant]
     Active Substance: ALBUTEROL
  39. LOSARTAN [Concomitant]
     Active Substance: LOSARTAN
  40. AMLODIPINE [Concomitant]
     Active Substance: AMLODIPINE BESYLATE
  41. METOPROLOL [Concomitant]
     Active Substance: METOPROLOL
  42. TYLENOL [Concomitant]
     Active Substance: ACETAMINOPHEN
  43. PRAVASTATIN [Concomitant]
     Active Substance: PRAVASTATIN

REACTIONS (16)
  - Haemoptysis [Unknown]
  - Disease progression [Unknown]
  - Lower respiratory tract infection [Unknown]
  - Feeling abnormal [Unknown]
  - Weight decreased [Unknown]
  - Decreased appetite [Unknown]
  - Asthenia [Unknown]
  - Ocular hyperaemia [Unknown]
  - Sputum discoloured [Unknown]
  - Respiratory tract infection [Unknown]
  - Eye irritation [Not Recovered/Not Resolved]
  - Poor venous access [Unknown]
  - Chronic obstructive pulmonary disease [Unknown]
  - Nausea [Recovered/Resolved]
  - Dyspnoea [Recovering/Resolving]
  - Dizziness [Unknown]
